FAERS Safety Report 25839550 (Version 1)
Quarter: 2025Q3

REPORT INFORMATION
  Report Type: Spontaneous
  Country: US (occurrence: US)
  Receive Date: 20250924
  Receipt Date: 20250924
  Transmission Date: 20251020
  Serious: No
  Sender: LAVIPHARM
  Company Number: US-Lavipharm SA-2185185

PATIENT
  Sex: Female

DRUGS (1)
  1. CLONIDINE TRANSDERMAL SYSTEM [Suspect]
     Active Substance: CLONIDINE

REACTIONS (3)
  - Muscle tightness [Unknown]
  - Erythema [Unknown]
  - Dry skin [Unknown]
